APPROVED DRUG PRODUCT: MOEXIPRIL HYDROCHLORIDE AND HYDROCHLOROTHIAZIDE
Active Ingredient: HYDROCHLOROTHIAZIDE; MOEXIPRIL HYDROCHLORIDE
Strength: 25MG;15MG
Dosage Form/Route: TABLET;ORAL
Application: A090096 | Product #003
Applicant: CHARTWELL RX SCIENCES LLC
Approved: Sep 25, 2008 | RLD: No | RS: No | Type: DISCN